FAERS Safety Report 4511015-7 (Version None)
Quarter: 2004Q4

REPORT INFORMATION
  Report Type: 
  Country: None (occurrence: None)
  Receive Date: 20041018
  Receipt Date: 20040723
  Transmission Date: 20050328
  Serious: No
  Sender: FDA-Public Use
  Company Number: 208087

PATIENT
  Age: 54 Year
  Sex: Female

DRUGS (4)
  1. XOLAIR [Suspect]
     Dosage: 225 MG, Q2W, SUBCUTANEOUS
     Route: 058
     Dates: start: 20031203
  2. SLO-BID [Concomitant]
  3. ACTONEL [Concomitant]
  4. SOLVENT,INFUSION SOLN, 2 MIU [Concomitant]

REACTIONS (1)
  - ARTHRALGIA [None]
